FAERS Safety Report 9324001 (Version 1)
Quarter: 2013Q2

REPORT INFORMATION
  Report Type: Spontaneous
  Country: US (occurrence: US)
  Receive Date: 20130603
  Receipt Date: 20130603
  Transmission Date: 20140414
  Serious: Yes (Hospitalization)
  Sender: FDA-Public Use
  Company Number: US-PFIZER INC-2013166170

PATIENT
  Age: 67 Year
  Sex: Male
  Weight: 41 kg

DRUGS (3)
  1. TIKOSYN [Suspect]
     Indication: ATRIAL FIBRILLATION
     Dosage: 125 UG, 2X/DAY
     Route: 048
     Dates: start: 2009
  2. NEXIUM [Concomitant]
     Indication: DYSPEPSIA
     Dosage: UNK
  3. XANAX [Concomitant]
     Dosage: UNK

REACTIONS (2)
  - Decubitus ulcer [Unknown]
  - Infection [Unknown]
